FAERS Safety Report 18895019 (Version 7)
Quarter: 2021Q2

REPORT INFORMATION
  Report Type: Report from Study
  Country: None (occurrence: US)
  Receive Date: 20210216
  Receipt Date: 20210602
  Transmission Date: 20210717
  Serious: Yes (Hospitalization, Other)
  Sender: FDA-Public Use
  Company Number: US-ABBVIE-21K-163-3775084-00

PATIENT
  Age: 77 Year
  Sex: Male
  Weight: 74 kg

DRUGS (11)
  1. FLOMAX [Concomitant]
     Active Substance: TAMSULOSIN HYDROCHLORIDE
     Indication: PRODUCT USED FOR UNKNOWN INDICATION
     Route: 048
  2. OMEPRAZOLE. [Concomitant]
     Active Substance: OMEPRAZOLE
     Indication: PRODUCT USED FOR UNKNOWN INDICATION
  3. DUOPA [Suspect]
     Active Substance: CARBIDOPA\LEVODOPA
     Indication: PARKINSON^S DISEASE
     Dosage: 4.63 MG/ML 20 MG/ML
     Route: 050
     Dates: start: 2016
  4. DUOPA [Suspect]
     Active Substance: CARBIDOPA\LEVODOPA
     Route: 050
     Dates: start: 20170908, end: 20210123
  5. DUOPA [Suspect]
     Active Substance: CARBIDOPA\LEVODOPA
     Route: 050
     Dates: start: 20210303, end: 20210527
  6. WARFARIN [Concomitant]
     Active Substance: WARFARIN
     Indication: THROMBOSIS
  7. COUMADIN [Concomitant]
     Active Substance: WARFARIN SODIUM
     Indication: PRODUCT USED FOR UNKNOWN INDICATION
     Route: 048
  8. DUOPA [Suspect]
     Active Substance: CARBIDOPA\LEVODOPA
     Route: 050
     Dates: start: 20170824
  9. GLIPIZIDE. [Concomitant]
     Active Substance: GLIPIZIDE
     Indication: BLOOD GLUCOSE
  10. TAMSULOSIN [Concomitant]
     Active Substance: TAMSULOSIN
     Indication: PROSTATIC DISORDER
  11. PROTONIX [Concomitant]
     Active Substance: PANTOPRAZOLE SODIUM
     Indication: PRODUCT USED FOR UNKNOWN INDICATION

REACTIONS (27)
  - Urinary tract infection [Not Recovered/Not Resolved]
  - Disorientation [Recovered/Resolved]
  - Abdominal pain [Not Recovered/Not Resolved]
  - Device dislocation [Unknown]
  - Fall [Recovered/Resolved]
  - Blood urine present [Not Recovered/Not Resolved]
  - Gait disturbance [Recovering/Resolving]
  - Disorientation [Not Recovered/Not Resolved]
  - Rehabilitation therapy [Unknown]
  - Escherichia urinary tract infection [Not Recovered/Not Resolved]
  - Weight decreased [Unknown]
  - Dehydration [Recovering/Resolving]
  - Skin laceration [Recovering/Resolving]
  - Decreased appetite [Unknown]
  - Cognitive disorder [Unknown]
  - Dysphagia [Not Recovered/Not Resolved]
  - Laboratory test abnormal [Unknown]
  - Choking [Not Recovered/Not Resolved]
  - Infection [Not Recovered/Not Resolved]
  - Sepsis [Unknown]
  - Laboratory test abnormal [Not Recovered/Not Resolved]
  - Somnolence [Recovered/Resolved]
  - Asthenia [Not Recovered/Not Resolved]
  - Blood sodium decreased [Recovered/Resolved]
  - Deep vein thrombosis [Unknown]
  - Pneumonia fungal [Recovering/Resolving]
  - Muscular weakness [Recovering/Resolving]

NARRATIVE: CASE EVENT DATE: 2021
